FAERS Safety Report 24000930 (Version 4)
Quarter: 2025Q3

REPORT INFORMATION
  Report Type: Spontaneous
  Country: JP (occurrence: JP)
  Receive Date: 20240621
  Receipt Date: 20250803
  Transmission Date: 20251021
  Serious: Yes (Other)
  Sender: ALEXION PHARMACEUTICALS
  Company Number: 2024A140639

PATIENT
  Age: 69 Year
  Sex: Female

DRUGS (3)
  1. ONDEXXYA [Suspect]
     Active Substance: ANDEXANET ALFA
     Indication: Subarachnoid haemorrhage
  2. RIVAROXABAN [Concomitant]
     Active Substance: RIVAROXABAN
     Indication: Atrial fibrillation
  3. RIVAROXABAN [Concomitant]
     Active Substance: RIVAROXABAN

REACTIONS (1)
  - Ruptured cerebral aneurysm [Unknown]

NARRATIVE: CASE EVENT DATE: 20240610
